FAERS Safety Report 8490024-X (Version None)
Quarter: 2012Q3

REPORT INFORMATION
  Report Type: 
  Country: None (occurrence: None)
  Receive Date: 20120705
  Receipt Date: 20120627
  Transmission Date: 20120928
  Serious: Yes (Hospitalization)
  Sender: FDA-Public Use
  Company Number: US-JNJFOC-20120603820

PATIENT
  Sex: Female

DRUGS (1)
  1. DOXORUBICIN HCL [Suspect]
     Indication: OVARIAN CANCER
     Route: 042
     Dates: start: 20120601

REACTIONS (5)
  - RASH [None]
  - TENDERNESS [None]
  - BLISTER [None]
  - BACK PAIN [None]
  - INTESTINAL OBSTRUCTION [None]
